FAERS Safety Report 9718184 (Version 1)
Quarter: 2013Q4

REPORT INFORMATION
  Report Type: Spontaneous
  Country: US (occurrence: US)
  Receive Date: 20131125
  Receipt Date: 20131125
  Transmission Date: 20140711
  Serious: No
  Sender: FDA-Public Use
  Company Number: US-VIVUS-2013V1000077

PATIENT
  Age: 46 Year
  Sex: Female
  Weight: 70.82 kg

DRUGS (1)
  1. QSYMIA 3.75MG/23MG [Suspect]
     Indication: OBESITY
     Dosage: DAILY DOSE: 1 CAPSULE,
     Route: 048
     Dates: start: 201301, end: 201301

REACTIONS (1)
  - Nasopharyngitis [Not Recovered/Not Resolved]
